FAERS Safety Report 5127744-0 (Version None)
Quarter: 2006Q4

REPORT INFORMATION
  Report Type: 
  Country: None (occurrence: None)
  Receive Date: 20061016
  Receipt Date: 20061003
  Transmission Date: 20070319
  Serious: Yes (Other)
  Sender: FDA-Public Use
  Company Number: US-AMGEN-KDL189181

PATIENT
  Sex: Female

DRUGS (5)
  1. ENBREL [Suspect]
     Indication: PSORIASIS
     Route: 058
     Dates: start: 20060609, end: 20060810
  2. SORIATANE [Concomitant]
     Dates: start: 20060101
  3. ZOLOFT [Concomitant]
     Dates: start: 19960101
  4. IBUPROFEN [Concomitant]
  5. GLUCOSAMINE [Concomitant]
     Dates: start: 20030101

REACTIONS (2)
  - ALANINE AMINOTRANSFERASE INCREASED [None]
  - ASPARTATE AMINOTRANSFERASE INCREASED [None]
